FAERS Safety Report 18477140 (Version 2)
Quarter: 2020Q4

REPORT INFORMATION
  Report Type: Spontaneous
  Country: CN (occurrence: CN)
  Receive Date: 20201107
  Receipt Date: 20201112
  Transmission Date: 20210114
  Serious: Yes (Other)
  Sender: FDA-Public Use
  Company Number: NVSC2020CN298696

PATIENT
  Age: 52 Year
  Sex: Female

DRUGS (8)
  1. DEPAKIN [Concomitant]
     Active Substance: VALPROATE SODIUM
     Indication: PRODUCT USED FOR UNKNOWN INDICATION
     Dosage: 0.8 G
     Route: 042
  2. DEPAKIN [Concomitant]
     Active Substance: VALPROATE SODIUM
     Dosage: 0.5 G, BID
     Route: 048
     Dates: end: 20200518
  3. OXCARBAZEPINE. [Suspect]
     Active Substance: OXCARBAZEPINE
     Indication: PRODUCT USED FOR UNKNOWN INDICATION
     Dosage: UNK
     Route: 048
  4. OXCARBAZEPINE. [Suspect]
     Active Substance: OXCARBAZEPINE
     Dosage: 300 MG, BID
     Route: 048
  5. ESTAZOLAM. [Concomitant]
     Active Substance: ESTAZOLAM
     Indication: PRODUCT USED FOR UNKNOWN INDICATION
     Dosage: 8 MG
     Route: 065
  6. LUMINAL [Concomitant]
     Active Substance: PHENOBARBITAL SODIUM
     Indication: PRODUCT USED FOR UNKNOWN INDICATION
     Dosage: UNK
     Route: 065
  7. DIAZEPAM. [Concomitant]
     Active Substance: DIAZEPAM
     Indication: PRODUCT USED FOR UNKNOWN INDICATION
     Dosage: UNK
     Route: 048
  8. PERPHENAZINE. [Concomitant]
     Active Substance: PERPHENAZINE
     Indication: PRODUCT USED FOR UNKNOWN INDICATION
     Dosage: 2 MG, BID
     Route: 065

REACTIONS (18)
  - Epilepsy [Unknown]
  - Restlessness [Unknown]
  - Altered state of consciousness [Recovering/Resolving]
  - Confusional state [Unknown]
  - Depression [Unknown]
  - Dyskinesia [Unknown]
  - Status epilepticus [Recovering/Resolving]
  - Insomnia [Unknown]
  - Encephalopathy [Unknown]
  - Generalised tonic-clonic seizure [Recovering/Resolving]
  - Seizure [Recovered/Resolved]
  - Urinary retention [Unknown]
  - Anxiety [Unknown]
  - Suicidal ideation [Unknown]
  - Encephalitis [Unknown]
  - Coma [Recovering/Resolving]
  - Depressed mood [Unknown]
  - Dysphoria [Unknown]
